FAERS Safety Report 18151457 (Version 2)
Quarter: 2020Q4

REPORT INFORMATION
  Report Type: Report from Study
  Country: CO (occurrence: CO)
  Receive Date: 20200814
  Receipt Date: 20201005
  Transmission Date: 20210113
  Serious: Yes (Disabling, Other)
  Sender: FDA-Public Use
  Company Number: CO-BRISTOL-MYERS SQUIBB COMPANY-BMS-2020-055477

PATIENT
  Age: 73 Year
  Sex: Male

DRUGS (1)
  1. NIVOLUMAB [Suspect]
     Active Substance: NIVOLUMAB
     Indication: MALIGNANT MELANOMA
     Dosage: 243 MILLIGRAM, Q2WK
     Route: 042
     Dates: start: 20200506

REACTIONS (4)
  - Constipation [Recovering/Resolving]
  - Deafness unilateral [Recovering/Resolving]
  - Ear infection fungal [Unknown]
  - Arthralgia [Recovering/Resolving]

NARRATIVE: CASE EVENT DATE: 20200709
